FAERS Safety Report 5072335-3 (Version None)
Quarter: 2006Q3

REPORT INFORMATION
  Report Type: 
  Country: None (occurrence: None)
  Receive Date: 20060807
  Receipt Date: 20060316
  Transmission Date: 20061208
  Serious: Yes (Death)
  Sender: FDA-Public Use
  Company Number: 2006AP03582

PATIENT
  Age: 8 Year
  Sex: Male

DRUGS (1)
  1. MERONEM [Suspect]
     Indication: SEPSIS
     Dosage: CONFIRMED COUNTERFEIT PRODUCT
     Route: 042

REACTIONS (2)
  - PNEUMONIA [None]
  - POOR QUALITY DRUG ADMINISTERED [None]
